FAERS Safety Report 6729972-7 (Version None)
Quarter: 2010Q2

REPORT INFORMATION
  Report Type: 
  Country: None (occurrence: None)
  Receive Date: 20100513
  Receipt Date: 20100428
  Transmission Date: 20101027
  Serious: Yes (Hospitalization)
  Sender: FDA-Public Use
  Company Number: TW-JNJFOC-20080104416

PATIENT
  Age: 72 Year
  Sex: Male

DRUGS (15)
  1. DECITABINE (DECITABINE) LYOPHILIZED POWDER [Suspect]
     Indication: ACUTE MYELOID LEUKAEMIA
     Dosage: 20 MG/M2, 1 IN 1 D, INTRAVENOUS; 20 MG/M2, 1 IN 1 DAY, INTRAVENOUS; 20 MG/M2, 1 IN 1 DAY,INTRAVENOUS
     Route: 042
     Dates: start: 20071204, end: 20071208
  2. DECITABINE (DECITABINE) LYOPHILIZED POWDER [Suspect]
     Indication: ACUTE MYELOID LEUKAEMIA
     Dosage: 20 MG/M2, 1 IN 1 D, INTRAVENOUS; 20 MG/M2, 1 IN 1 DAY, INTRAVENOUS; 20 MG/M2, 1 IN 1 DAY,INTRAVENOUS
     Route: 042
     Dates: start: 20080102, end: 20080106
  3. DECITABINE (DECITABINE) LYOPHILIZED POWDER [Suspect]
     Indication: ACUTE MYELOID LEUKAEMIA
     Dosage: 20 MG/M2, 1 IN 1 D, INTRAVENOUS; 20 MG/M2, 1 IN 1 DAY, INTRAVENOUS; 20 MG/M2, 1 IN 1 DAY,INTRAVENOUS
     Route: 042
     Dates: start: 20080130, end: 20080203
  4. FELODIPINE [Concomitant]
  5. GLIPIZIDE [Concomitant]
  6. METFORMIN HCL [Concomitant]
  7. MAGNESIUM OXIDE (MAGNESIUM OXIDE) [Concomitant]
  8. SILYMARIN (SILYBUM MARIANUM) [Concomitant]
  9. SENNOSIDE A+B CALCIUM (SENNOSIDE A+B CALCIUM) [Concomitant]
  10. MOSAPRIDE (MOSAPRIDE) [Concomitant]
  11. ACETAMINOPHEN [Concomitant]
  12. CLINDAMYCIN HCL [Concomitant]
  13. CEFEPIME [Concomitant]
  14. DIPHENHYDRAMINE HCL [Concomitant]
  15. FILGRASTIM (FILGRASTIM) [Concomitant]

REACTIONS (5)
  - ABDOMINAL TENDERNESS [None]
  - DYSPHONIA [None]
  - FEBRILE NEUTROPENIA [None]
  - ODYNOPHAGIA [None]
  - TONSILLITIS [None]
